FAERS Safety Report 9986485 (Version 1)
Quarter: 2014Q1

REPORT INFORMATION
  Report Type: Report from Study
  Country: US (occurrence: US)
  Receive Date: 20140307
  Receipt Date: 20140307
  Transmission Date: 20141002
  Serious: No
  Sender: FDA-Public Use
  Company Number: US-ABBVIE-13P-163-1082149-00

PATIENT
  Age: 58 Year
  Sex: Female

DRUGS (7)
  1. HUMIRA [Suspect]
     Indication: PSORIASIS
     Dates: start: 20130221
  2. DIOVAN [Concomitant]
     Indication: HYPERTENSION
  3. ACCUPRIL [Concomitant]
     Indication: HYPERTENSION
  4. ESTRIODOL [Concomitant]
     Indication: HORMONE REPLACEMENT THERAPY
  5. PLAQUINIL [Concomitant]
     Indication: POLYARTHRITIS
  6. VITAMIN D [Concomitant]
     Indication: VITAMIN SUPPLEMENTATION
  7. PLAIN TYLENOL [Concomitant]
     Indication: PAIN

REACTIONS (1)
  - Nasopharyngitis [Not Recovered/Not Resolved]
